FAERS Safety Report 21971170 (Version 1)
Quarter: 2023Q1

REPORT INFORMATION
  Report Type: Spontaneous
  Country: US (occurrence: None)
  Receive Date: 20230209
  Receipt Date: 20230209
  Transmission Date: 20230417
  Serious: No
  Sender: FDA-Public Use
  Company Number: 2023A030621

PATIENT
  Age: 81 Year
  Sex: Male

DRUGS (3)
  1. SEROQUEL [Suspect]
     Active Substance: QUETIAPINE FUMARATE
     Indication: Product use in unapproved indication
     Route: 048
  2. CABLIVI [Suspect]
     Active Substance: CAPLACIZUMAB-YHDP
     Indication: Product use in unapproved indication
     Route: 058
     Dates: start: 20221223
  3. TRAZODONE HYDROCHLORIDE [Suspect]
     Active Substance: TRAZODONE HYDROCHLORIDE
     Indication: Product use in unapproved indication

REACTIONS (14)
  - Gait disturbance [Unknown]
  - Feeling abnormal [Unknown]
  - Hepatic enzyme increased [Unknown]
  - Incoherent [Unknown]
  - Muscle tone disorder [Unknown]
  - Platelet count abnormal [Unknown]
  - Rash [Unknown]
  - Skin ulcer [Unknown]
  - Speech disorder [Unknown]
  - Trance [Unknown]
  - Weight decreased [Unknown]
  - Asthenia [Unknown]
  - Movement disorder [Unknown]
  - Product use in unapproved indication [Unknown]
